FAERS Safety Report 7262784-7 (Version None)
Quarter: 2011Q1

REPORT INFORMATION
  Report Type: 
  Country: None (occurrence: None)
  Receive Date: 20110130
  Receipt Date: 20100913
  Transmission Date: 20110831
  Serious: No
  Sender: FDA-Public Use
  Company Number: US-ABBOTT-10P-163-0670652-00

PATIENT
  Age: 19 Year
  Sex: Female

DRUGS (7)
  1. MULTI-VITAMIN [Concomitant]
     Indication: VITAMIN SUPPLEMENTATION
  2. ZANTAC [Concomitant]
     Indication: ABDOMINAL DISCOMFORT
  3. FOLIC ACID [Concomitant]
     Indication: PRODUCT USED FOR UNKNOWN INDICATION
  4. MOBIC [Concomitant]
     Indication: JUVENILE ARTHRITIS
     Dosage: 15 OR 150 MG DAILY
  5. PLAQUENIL [Concomitant]
     Indication: JUVENILE ARTHRITIS
  6. HUMIRA [Suspect]
     Indication: JUVENILE ARTHRITIS
  7. MTX [Concomitant]
     Indication: JUVENILE ARTHRITIS

REACTIONS (2)
  - INAPPROPRIATE SCHEDULE OF DRUG ADMINISTRATION [None]
  - STRESS [None]
